FAERS Safety Report 16728209 (Version 1)
Quarter: 2019Q3

REPORT INFORMATION
  Report Type: Spontaneous
  Country: TR (occurrence: TR)
  Receive Date: 20190822
  Receipt Date: 20190822
  Transmission Date: 20191005
  Serious: Yes (Other)
  Sender: FDA-Public Use
  Company Number: TR-ABBVIE-19K-161-2879049-00

PATIENT
  Age: 79 Year
  Sex: Male
  Weight: 73 kg

DRUGS (4)
  1. HUMIRA [Suspect]
     Active Substance: ADALIMUMAB
     Indication: PSORIATIC ARTHROPATHY
     Route: 058
     Dates: start: 20190601, end: 201907
  2. NOOTROPIL [Concomitant]
     Active Substance: PIRACETAM
     Indication: MEMORY IMPAIRMENT
  3. CORASPIN [Concomitant]
     Active Substance: ASPIRIN
     Indication: ANTICOAGULANT THERAPY
  4. DEMENT [Concomitant]
     Indication: PRODUCT USED FOR UNKNOWN INDICATION

REACTIONS (2)
  - Dermatitis allergic [Unknown]
  - Skin lesion [Unknown]

NARRATIVE: CASE EVENT DATE: 201907
